APPROVED DRUG PRODUCT: CALAN SR
Active Ingredient: VERAPAMIL HYDROCHLORIDE
Strength: 180MG **Federal Register determination that product was not discontinued or withdrawn for safety or effectiveness reasons**
Dosage Form/Route: TABLET, EXTENDED RELEASE;ORAL
Application: N019152 | Product #002
Applicant: PFIZER INC
Approved: Dec 15, 1989 | RLD: Yes | RS: No | Type: DISCN